FAERS Safety Report 21558734 (Version 1)
Quarter: 2022Q4

REPORT INFORMATION
  Report Type: Spontaneous
  Country: US (occurrence: None)
  Receive Date: 20221107
  Receipt Date: 20221107
  Transmission Date: 20230113
  Serious: No
  Sender: FDA-Public Use
  Company Number: 2022A345594

PATIENT
  Sex: Male

DRUGS (2)
  1. CRESTOR [Suspect]
     Active Substance: ROSUVASTATIN CALCIUM
     Route: 048
  2. ZETIA [Concomitant]
     Active Substance: EZETIMIBE

REACTIONS (2)
  - Thrombosis [Unknown]
  - Gait disturbance [Unknown]
